FAERS Safety Report 11054572 (Version 1)
Quarter: 2015Q2

REPORT INFORMATION
  Report Type: Spontaneous
  Country: FR (occurrence: FR)
  Receive Date: 20150422
  Receipt Date: 20150422
  Transmission Date: 20150821
  Serious: Yes (Hospitalization, Other)
  Sender: FDA-Public Use
  Company Number: FR-JNJFOC-2005076681

PATIENT
  Age: 78 Year
  Sex: Female

DRUGS (12)
  1. PANTOPRAZOLE SODIUM. [Suspect]
     Active Substance: PANTOPRAZOLE SODIUM
     Indication: MELAENA
     Dosage: DAILY DOSE QTY: 40 MG
     Route: 048
     Dates: start: 20040714
  2. CLORAZEPATE DIPOTASSIUM. [Suspect]
     Active Substance: CLORAZEPATE DIPOTASSIUM
     Indication: DEMENTIA
     Dosage: FREQUENCY TEXT: UNKNOWN DAILY DOSE TEXT: UNKNOWN
     Route: 048
     Dates: end: 20040720
  3. FOLIC ACID. [Concomitant]
     Active Substance: FOLIC ACID
     Route: 048
     Dates: start: 20040710
  4. PARACETAMOL [Suspect]
     Active Substance: ACETAMINOPHEN
     Route: 048
  5. HYDROXYZINE HYDROCHLORIDE. [Suspect]
     Active Substance: HYDROXYZINE HYDROCHLORIDE
     Indication: ILL-DEFINED DISORDER
     Dosage: DAILY DOSE QTY: 25 UG
     Route: 048
     Dates: start: 20040810
  6. CYAMEMAZINE [Concomitant]
     Active Substance: CYAMEMAZINE
     Route: 048
     Dates: start: 20040810
  7. PARACETAMOL [Suspect]
     Active Substance: ACETAMINOPHEN
     Indication: FRACTURE
     Dosage: DAILY DOSE QTY: 3 G
     Route: 048
     Dates: start: 20040807
  8. MEPROBAMATE. [Concomitant]
     Active Substance: MEPROBAMATE
     Route: 048
     Dates: start: 20040803
  9. CLAVULIN [Suspect]
     Active Substance: AMOXICILLIN\CLAVULANIC ACID
     Indication: PYREXIA
     Dosage: DAILY DOSE QTY: 3 G
     Route: 048
     Dates: start: 20040716, end: 20040725
  10. KETOPROFEN. [Suspect]
     Active Substance: KETOPROFEN
     Indication: FRACTURE
     Dosage: DAILY DOSE QTY: 50 MG
     Route: 048
     Dates: start: 20040808, end: 20040817
  11. CLAVULIN [Suspect]
     Active Substance: AMOXICILLIN\CLAVULANIC ACID
     Indication: LUNG DISORDER
     Dosage: DAILY DOSE QTY: 3 G
     Route: 048
     Dates: start: 20040716, end: 20040725
  12. VITAMIN B1 AND B6 [Concomitant]
     Active Substance: PYRIDOXINE HYDROCHLORIDE\THIAMINE HYDROCHLORIDE
     Route: 048
     Dates: start: 20040710

REACTIONS (7)
  - Lung disorder [Unknown]
  - Fall [Unknown]
  - Hepatitis cholestatic [Not Recovered/Not Resolved]
  - Overdose [Unknown]
  - Blood alkaline phosphatase increased [Unknown]
  - Femur fracture [Unknown]
  - Gamma-glutamyltransferase increased [Unknown]

NARRATIVE: CASE EVENT DATE: 20040716
